FAERS Safety Report 4846061-7 (Version None)
Quarter: 2005Q4

REPORT INFORMATION
  Report Type: 
  Country: None (occurrence: None)
  Receive Date: 20051202
  Receipt Date: 20051202
  Transmission Date: 20060501
  Serious: Yes (Hospitalization)
  Sender: FDA-Public Use
  Company Number: None

PATIENT
  Sex: Male
  Weight: 77.1115 kg

DRUGS (2)
  1. COREG [Suspect]
     Indication: HYPERTENSION
     Dosage: 25 MG    1/2 TAB   PO
     Route: 048
     Dates: start: 20051109, end: 20051109
  2. COREG [Suspect]
     Indication: HYPERTENSION
     Dosage: 6.25     1TAB    PO
     Route: 048
     Dates: start: 20051109, end: 20051109

REACTIONS (2)
  - BRADYCARDIA [None]
  - HYPOTENSION [None]
